FAERS Safety Report 9064434 (Version 1)
Quarter: 2013Q1

REPORT INFORMATION
  Report Type: Spontaneous
  Country: JP (occurrence: JP)
  Receive Date: 20130130
  Receipt Date: 20130130
  Transmission Date: 20140127
  Serious: Yes (Hospitalization)
  Sender: FDA-Public Use
  Company Number: JP-TEVA-382432ISR

PATIENT
  Age: 7 Decade
  Sex: Female

DRUGS (11)
  1. CEFTRIAXONE [Suspect]
     Indication: DIABETIC GANGRENE
     Dosage: 1 GRAM DAILY;
     Route: 042
  2. INSULIN [Concomitant]
     Route: 065
  3. CLOPIDOGREL [Concomitant]
     Route: 065
  4. ASPIRIN [Concomitant]
     Route: 065
  5. LANSOPRAZOLE [Concomitant]
     Route: 065
  6. BISOPROLOL [Concomitant]
     Route: 065
  7. NICORANDIL [Concomitant]
     Route: 065
  8. ENALAPRIL [Concomitant]
     Route: 065
  9. ALFACALCIDOL [Concomitant]
     Route: 065
  10. NIACINAMIDE, RIBOFLAVIN, PYRIDOXINE [Concomitant]
     Route: 065
  11. FOLIC ACID [Concomitant]
     Route: 065

REACTIONS (2)
  - Altered state of consciousness [Recovered/Resolved]
  - Aphasia [Unknown]
